FAERS Safety Report 19085739 (Version 2)
Quarter: 2021Q2

REPORT INFORMATION
  Report Type: Spontaneous
  Country: US (occurrence: US)
  Receive Date: 20210402
  Receipt Date: 20210430
  Transmission Date: 20210717
  Serious: No
  Sender: FDA-Public Use
  Company Number: US-ELI_LILLY_AND_COMPANY-US202103004627

PATIENT
  Age: 49 Year
  Sex: Female

DRUGS (6)
  1. TRULICITY [Suspect]
     Active Substance: DULAGLUTIDE
     Indication: TYPE 2 DIABETES MELLITUS
     Dosage: 3 MG, UNKNOWN
     Route: 058
     Dates: start: 202012
  2. GLYPRIDE [Concomitant]
     Active Substance: GLIMEPIRIDE
     Indication: TYPE 2 DIABETES MELLITUS
     Dosage: 4 MG, BID
  3. TRULICITY [Suspect]
     Active Substance: DULAGLUTIDE
     Dosage: 1.5 MG, UNKNOWN
     Route: 058
  4. TRULICITY [Suspect]
     Active Substance: DULAGLUTIDE
     Indication: TYPE 2 DIABETES MELLITUS
     Dosage: 0.75 MG, UNKNOWN
     Route: 058
     Dates: start: 2018
  5. FARXIGA [Concomitant]
     Active Substance: DAPAGLIFLOZIN PROPANEDIOL
     Indication: TYPE 2 DIABETES MELLITUS
     Dosage: 5 MG, UNKNOWN
  6. LANTUS [Concomitant]
     Active Substance: INSULIN GLARGINE
     Indication: TYPE 2 DIABETES MELLITUS
     Dosage: 55 U, UNKNOWN

REACTIONS (9)
  - Injection site pain [Unknown]
  - Diarrhoea [Recovered/Resolved]
  - Nausea [Recovering/Resolving]
  - Illness [Recovering/Resolving]
  - Blood glucose increased [Recovered/Resolved]
  - Decreased appetite [Recovering/Resolving]
  - Blood glucose increased [Recovered/Resolved]
  - Vomiting [Recovering/Resolving]
  - Product dose omission issue [Not Recovered/Not Resolved]

NARRATIVE: CASE EVENT DATE: 202012
